FAERS Safety Report 20585168 (Version 2)
Quarter: 2022Q1

REPORT INFORMATION
  Report Type: Spontaneous
  Country: US (occurrence: US)
  Receive Date: 20220311
  Receipt Date: 20220314
  Transmission Date: 20220423
  Serious: Yes (Hospitalization, Other)
  Sender: FDA-Public Use
  Company Number: US-PROCTER+GAMBLE-PH22002362

PATIENT
  Age: 23 Year
  Sex: Male

DRUGS (1)
  1. DIPHENHYDRAMINE HYDROCHLORIDE [Suspect]
     Active Substance: DIPHENHYDRAMINE HYDROCHLORIDE
     Dosage: (2000-2500 MG) 1 ONLY
     Route: 048

REACTIONS (23)
  - Overdose [Recovering/Resolving]
  - Generalised tonic-clonic seizure [Recovered/Resolved]
  - Ventricular extrasystoles [Recovered/Resolved]
  - Depressed level of consciousness [Unknown]
  - Blood pressure decreased [Unknown]
  - Mydriasis [Unknown]
  - Heart rate increased [Recovering/Resolving]
  - Unresponsive to stimuli [Unknown]
  - Areflexia [Unknown]
  - Corneal reflex decreased [Unknown]
  - Tachycardia [Recovering/Resolving]
  - Defect conduction intraventricular [Recovering/Resolving]
  - Electrocardiogram QT prolonged [Recovered/Resolved]
  - Blood pH decreased [Unknown]
  - PCO2 increased [Recovering/Resolving]
  - Lipase increased [Unknown]
  - Blood chloride increased [Unknown]
  - Anion gap increased [Unknown]
  - Blood lactic acid increased [Recovering/Resolving]
  - PO2 increased [Unknown]
  - Hypotension [Unknown]
  - Electrocardiogram QRS complex prolonged [Recovering/Resolving]
  - Mean arterial pressure increased [Recovering/Resolving]
